FAERS Safety Report 4465094-6 (Version None)
Quarter: 2004Q3

REPORT INFORMATION
  Report Type: 
  Country: None (occurrence: None)
  Receive Date: 20040928
  Receipt Date: 20040928
  Transmission Date: 20050211
  Serious: Yes (Life-Threatening, Hospitalization)
  Sender: FDA-Public Use
  Company Number: None

PATIENT
  Age: 22 Year
  Sex: Female
  Weight: 63.5036 kg

DRUGS (1)
  1. ZOLOFT  75 MILLIGRAMS  PFIZER [Suspect]
     Dosage: 75 MILIGR   ONCE A DAY   ORAL
     Route: 048
     Dates: start: 20031118, end: 20040602

REACTIONS (5)
  - DEPRESSION [None]
  - LACERATION [None]
  - SELF INJURIOUS BEHAVIOUR [None]
  - SUICIDAL IDEATION [None]
  - SUICIDE ATTEMPT [None]
